FAERS Safety Report 7280393-0 (Version None)
Quarter: 2011Q1

REPORT INFORMATION
  Report Type: 
  Country: None (occurrence: None)
  Receive Date: 20110208
  Receipt Date: 20110131
  Transmission Date: 20110831
  Serious: Yes (Other)
  Sender: FDA-Public Use
  Company Number: TR-ELI_LILLY_AND_COMPANY-TR201102000255

PATIENT
  Age: 52 Year
  Sex: Male

DRUGS (2)
  1. EXENATIDE [Suspect]
     Indication: DIABETES MELLITUS
     Dosage: UNK UNK, 2/D
     Route: 058
     Dates: start: 20110115, end: 20110117
  2. GLIFOR [Concomitant]
     Dosage: UNK, 2/D
     Route: 048

REACTIONS (3)
  - ASPHYXIA [None]
  - PYREXIA [None]
  - NAUSEA [None]
